FAERS Safety Report 21322530 (Version 1)
Quarter: 2022Q3

REPORT INFORMATION
  Report Type: Spontaneous
  Country: DE (occurrence: DE)
  Receive Date: 20220912
  Receipt Date: 20220912
  Transmission Date: 20221027
  Serious: Yes (Hospitalization, Other)
  Sender: FDA-Public Use
  Company Number: DE-GSKCCFEMEA-Case-01569433_AE-62084

PATIENT

DRUGS (1)
  1. NUCALA [Suspect]
     Active Substance: MEPOLIZUMAB
     Indication: Product used for unknown indication
     Dosage: UNK

REACTIONS (3)
  - Pancreatitis [Recovered/Resolved]
  - Enteritis [Recovered/Resolved]
  - Hepatitis [Recovered/Resolved]
